FAERS Safety Report 4704296-8 (Version None)
Quarter: 2005Q2

REPORT INFORMATION
  Report Type: 
  Country: None (occurrence: None)
  Receive Date: 20050630
  Receipt Date: 20050624
  Transmission Date: 20051028
  Serious: Yes (Hospitalization)
  Sender: FDA-Public Use
  Company Number: 2005UW09681

PATIENT
  Age: 62 Year
  Sex: Male
  Weight: 93 kg

DRUGS (5)
  1. TOPROL-XL [Suspect]
     Indication: HYPERTENSION
     Route: 048
  2. TOPROL-XL [Suspect]
     Route: 048
  3. PHENOBARBITAL [Concomitant]
  4. ISOSORBIDE DINITRATE [Concomitant]
  5. LIPITOR [Concomitant]

REACTIONS (3)
  - BRADYCARDIA [None]
  - DRUG DISPENSING ERROR [None]
  - MEDICATION ERROR [None]
